FAERS Safety Report 15965035 (Version 1)
Quarter: 2019Q1

REPORT INFORMATION
  Report Type: Spontaneous
  Country: US (occurrence: US)
  Receive Date: 20190215
  Receipt Date: 20190215
  Transmission Date: 20190418
  Serious: Yes (Death, Life-Threatening, Hospitalization, Other)
  Sender: FDA-Public Use
  Company Number: US-HIKMA PHARMACEUTICALS USA INC.-US-H14001-19-00847

PATIENT
  Age: 8 Decade
  Sex: Male

DRUGS (2)
  1. PREDNISONE. [Suspect]
     Active Substance: PREDNISONE
     Indication: SILICOSIS
  2. PREDNISONE. [Suspect]
     Active Substance: PREDNISONE
     Indication: CHRONIC OBSTRUCTIVE PULMONARY DISEASE
     Route: 065

REACTIONS (6)
  - Cardiac arrest [Fatal]
  - Burkholderia cepacia complex infection [Unknown]
  - Septic shock [Unknown]
  - Nocardiosis [Unknown]
  - Acute respiratory failure [Not Recovered/Not Resolved]
  - Pneumonia [Unknown]
